FAERS Safety Report 19217616 (Version 1)
Quarter: 2021Q2

REPORT INFORMATION
  Report Type: Spontaneous
  Country: US (occurrence: US)
  Receive Date: 20210505
  Receipt Date: 20210505
  Transmission Date: 20210717
  Serious: Yes (Death, Hospitalization)
  Sender: FDA-Public Use
  Company Number: None

PATIENT
  Age: 71 Year
  Sex: Female

DRUGS (20)
  1. FERROUS SULFATE. [Concomitant]
     Active Substance: FERROUS SULFATE
  2. PREDNISONE TABLET [Concomitant]
     Active Substance: PREDNISONE
  3. FLUOXETINE [Concomitant]
     Active Substance: FLUOXETINE HYDROCHLORIDE
  4. HALOPERIDOL SOLUTION [Concomitant]
     Active Substance: HALOPERIDOL
  5. METOPROLOL TABLET [Concomitant]
     Active Substance: METOPROLOL
  6. ATOVAQUONE SUSPENSION [Concomitant]
  7. NIACINAMIDE TABLET [Concomitant]
  8. ZYRTEC [Concomitant]
     Active Substance: CETIRIZINE HYDROCHLORIDE
  9. CYCLOSPORINE MODIFIED [Suspect]
     Active Substance: CYCLOSPORINE
     Indication: LUNG TRANSPLANT
     Route: 048
     Dates: start: 20191125
  10. CYCLOSPORINE MODIFIED [Suspect]
     Active Substance: CYCLOSPORINE
     Indication: LUNG TRANSPLANT
     Route: 048
     Dates: start: 20191125
  11. ACETAMINOPHEN SUPPOSITORY [Concomitant]
     Active Substance: ACETAMINOPHEN
  12. AMLODIPINE [Concomitant]
     Active Substance: AMLODIPINE BESYLATE
  13. CALCITRIOL CAPSULE [Concomitant]
     Active Substance: CALCITRIOL
  14. SODIUM BICARBONATE TABLET [Concomitant]
  15. CALCIUM + VITAMIN D TABLET [Concomitant]
  16. HYDROMORPHONE TABLET [Concomitant]
  17. LISINOPRIL TABLET [Concomitant]
     Active Substance: LISINOPRIL
  18. FENTANYL TRANSDERMAL SYSTEM [Concomitant]
     Active Substance: FENTANYL
  19. GABAPENTIN CAPSULE [Concomitant]
     Active Substance: GABAPENTIN
  20. LORAZEPAM TABLET [Concomitant]
     Active Substance: LORAZEPAM

REACTIONS (3)
  - Fall [None]
  - Hip fracture [None]
  - Condition aggravated [None]

NARRATIVE: CASE EVENT DATE: 20210430
